FAERS Safety Report 18813392 (Version 1)
Quarter: 2021Q1

REPORT INFORMATION
  Report Type: Spontaneous
  Country: US (occurrence: US)
  Receive Date: 20210201
  Receipt Date: 20210201
  Transmission Date: 20210419
  Serious: Yes (Other)
  Sender: FDA-Public Use
  Company Number: US-PURDUE-USA-2020-0169567

PATIENT
  Sex: Male

DRUGS (6)
  1. HYDROCODONE BITARTRATE AND ACETAMINOPHEN [Suspect]
     Active Substance: ACETAMINOPHEN\HYDROCODONE BITARTRATE
     Indication: SPINAL CORD INJURY
     Route: 048
  2. HYDROMORPHONE HYDROCHLORIDE IMMEDIATE?RELEASE (SIMILAR TO IND 38,424) [Suspect]
     Active Substance: HYDROMORPHONE HYDROCHLORIDE
     Indication: SPINAL CORD INJURY
     Dosage: UNK
     Route: 048
     Dates: start: 2001, end: 2015
  3. VICODIN [Suspect]
     Active Substance: ACETAMINOPHEN\HYDROCODONE BITARTRATE
     Indication: SPINAL CORD INJURY
     Route: 048
  4. TRAMADOL. [Suspect]
     Active Substance: TRAMADOL
     Dosage: UNK
     Dates: start: 2001, end: 2015
  5. OXYCONTIN [Suspect]
     Active Substance: OXYCODONE HYDROCHLORIDE
     Indication: SPINAL CORD INJURY
     Dosage: UNK
     Route: 048
     Dates: start: 2001, end: 2015
  6. OXYCODONE HCL CR TABLETS (SIMILAR TO NDA 22?272) [Suspect]
     Active Substance: OXYCODONE HYDROCHLORIDE
     Indication: SPINAL CORD INJURY
     Dosage: UNK
     Route: 048
     Dates: start: 2001, end: 2015

REACTIONS (5)
  - Hypoaesthesia [Unknown]
  - Inguinal hernia [Unknown]
  - Drug dependence [Unknown]
  - Joint injury [Unknown]
  - Limb injury [Unknown]
